FAERS Safety Report 6443197-4 (Version None)
Quarter: 2009Q4

REPORT INFORMATION
  Report Type: 
  Country: None (occurrence: None)
  Receive Date: 20091117
  Receipt Date: 20091106
  Transmission Date: 20100525
  Serious: Yes (Hospitalization, Other)
  Sender: FDA-Public Use
  Company Number: US-ELI_LILLY_AND_COMPANY-US200911002023

PATIENT
  Sex: Female

DRUGS (7)
  1. HUMALOG [Suspect]
     Dosage: 33 U, 3/D
     Dates: start: 20060401
  2. HUMALOG [Suspect]
     Dosage: 29 U, 3/D
  3. HUMALOG [Suspect]
     Dosage: 20 U, 3/D
  4. LYRICA [Concomitant]
  5. OXYGEN [Concomitant]
  6. ANTIBIOTICS [Concomitant]
  7. LEVEMIR [Concomitant]
     Dosage: 80 U, 2/D

REACTIONS (18)
  - ABNORMAL BEHAVIOUR [None]
  - AMNESIA [None]
  - BLOOD GLUCOSE ABNORMAL [None]
  - BLOOD GLUCOSE DECREASED [None]
  - BLOOD GLUCOSE INCREASED [None]
  - CAPILLARY LEAK SYNDROME [None]
  - CARDIAC FAILURE CONGESTIVE [None]
  - CONCUSSION [None]
  - CONTUSION [None]
  - FALL [None]
  - HEAD INJURY [None]
  - NAUSEA [None]
  - OEDEMA [None]
  - ORGAN FAILURE [None]
  - PYREXIA [None]
  - SEPTIC SHOCK [None]
  - SKIN ULCER [None]
  - VISION BLURRED [None]
